FAERS Safety Report 11415545 (Version 1)
Quarter: 2015Q3

REPORT INFORMATION
  Report Type: Spontaneous
  Country: US (occurrence: None)
  Receive Date: 20150824
  Receipt Date: 20150824
  Transmission Date: 20151125
  Serious: No
  Sender: FDA-Public Use
  Company Number: None

PATIENT
  Age: 22 Year
  Sex: Female
  Weight: 61.24 kg

DRUGS (1)
  1. PARAGARD T 380A [Suspect]
     Active Substance: COPPER
     Indication: CONTRACEPTION
     Dosage: 1 DEVICE, INSERTED, REMAINS
     Route: 067
     Dates: start: 20140623, end: 20141001

REACTIONS (4)
  - Gastric disorder [None]
  - Depression [None]
  - Copper metabolism disorder [None]
  - Tachyphrenia [None]

NARRATIVE: CASE EVENT DATE: 20140820
